FAERS Safety Report 18304729 (Version 1)
Quarter: 2020Q3

REPORT INFORMATION
  Report Type: Report from Study
  Country: CA (occurrence: CA)
  Receive Date: 20200924
  Receipt Date: 20200924
  Transmission Date: 20201103
  Serious: Yes (Other)
  Sender: FDA-Public Use
  Company Number: CA-ACCORD-202016

PATIENT
  Age: 62 Year
  Sex: Female
  Weight: 80 kg

DRUGS (3)
  1. DENOSUMAB [Suspect]
     Active Substance: DENOSUMAB
     Indication: PRODUCT USED FOR UNKNOWN INDICATION
     Route: 065
  2. CARBOPLATIN. [Suspect]
     Active Substance: CARBOPLATIN
     Indication: PRODUCT USED FOR UNKNOWN INDICATION
     Route: 065
  3. PEMBROLIZUMAB. [Suspect]
     Active Substance: PEMBROLIZUMAB
     Indication: NON-SMALL CELL LUNG CANCER
     Dosage: 1 EVERY 3 WEEKS
     Route: 042

REACTIONS (19)
  - Lacrimation increased [Unknown]
  - Liver function test abnormal [Unknown]
  - Localised infection [Unknown]
  - Nausea [Unknown]
  - Skin discolouration [Unknown]
  - Lung operation [Unknown]
  - Malaise [Unknown]
  - Platelet count decreased [Unknown]
  - Pulse abnormal [Unknown]
  - Somnolence [Unknown]
  - Blood pressure abnormal [Unknown]
  - Renal impairment [Unknown]
  - Appetite disorder [Unknown]
  - Bone pain [Unknown]
  - Fatigue [Unknown]
  - Inappropriate schedule of product administration [Unknown]
  - Hip arthroplasty [Unknown]
  - Oedema peripheral [Unknown]
  - Pain [Unknown]
